FAERS Safety Report 15125570 (Version 2)
Quarter: 2018Q4

REPORT INFORMATION
  Report Type: Spontaneous
  Country: US (occurrence: US)
  Receive Date: 20180710
  Receipt Date: 20181228
  Transmission Date: 20190204
  Serious: Yes (Hospitalization, Other)
  Sender: FDA-Public Use
  Company Number: US-SAKK-2018SA183908AA

PATIENT
  Age: 85 Year
  Sex: Female

DRUGS (1)
  1. PRALUENT [Suspect]
     Active Substance: ALIROCUMAB
     Indication: HYPERLIPIDAEMIA
     Dosage: 75 MG, QOW
     Route: 058
     Dates: start: 20180503

REACTIONS (5)
  - Pyrexia [Unknown]
  - Myocardial infarction [Unknown]
  - Gastric disorder [Unknown]
  - Neuropathy peripheral [Unknown]
  - Cardiac failure [Unknown]

NARRATIVE: CASE EVENT DATE: 2018
